FAERS Safety Report 4296692-0 (Version None)
Quarter: 2004Q1

REPORT INFORMATION
  Report Type: 
  Country: None (occurrence: None)
  Receive Date: 20040217
  Receipt Date: 20040114
  Transmission Date: 20041129
  Serious: Yes (Hospitalization)
  Sender: FDA-Public Use
  Company Number: WAES 0401USA01109

PATIENT

DRUGS (1)
  1. STROMECTOL [Suspect]
     Route: 048

REACTIONS (2)
  - ASTHENIA [None]
  - CONFUSIONAL STATE [None]
